FAERS Safety Report 6849261-X (Version None)
Quarter: 2010Q3

REPORT INFORMATION
  Report Type: 
  Country: None (occurrence: None)
  Receive Date: 20100716
  Receipt Date: 20100712
  Transmission Date: 20110219
  Serious: Yes (Other)
  Sender: FDA-Public Use
  Company Number: US-PFIZER INC-2010072941

PATIENT
  Sex: Female

DRUGS (6)
  1. DETROL LA [Suspect]
     Indication: IRRITABLE BOWEL SYNDROME
     Dosage: 4 MG, 1X/DAY ON AND OFF AS REQUIRED
     Route: 048
  2. DETROL LA [Suspect]
     Indication: CYSTITIS INTERSTITIAL
  3. DETROL [Suspect]
     Indication: MICTURITION URGENCY
     Dosage: UNK
  4. DETROL [Suspect]
     Indication: IRRITABLE BOWEL SYNDROME
  5. DETROL [Suspect]
     Indication: CYSTITIS INTERSTITIAL
  6. DARIFENACIN [Suspect]
     Indication: HYPERTONIC BLADDER

REACTIONS (6)
  - DRUG INEFFECTIVE [None]
  - EYE PRURITUS [None]
  - HYPERTENSION [None]
  - PRURITUS [None]
  - RHINORRHOEA [None]
  - TRANSIENT ISCHAEMIC ATTACK [None]
